FAERS Safety Report 8391368-2 (Version None)
Quarter: 2012Q2

REPORT INFORMATION
  Report Type: 
  Country: None (occurrence: None)
  Receive Date: 20120529
  Receipt Date: 20120523
  Transmission Date: 20120825
  Serious: Yes (Hospitalization)
  Sender: FDA-Public Use
  Company Number: US-BAYER-2012-051522

PATIENT
  Age: 41 Year
  Sex: Female
  Weight: 104.31 kg

DRUGS (8)
  1. YASMIN [Suspect]
  2. NIFEREX [Concomitant]
  3. MIRENA [Concomitant]
  4. COLACE [Concomitant]
  5. NEXIUM [Concomitant]
  6. IRON [Concomitant]
  7. VITAMIN C [Concomitant]
  8. IBUPROFEN [Concomitant]

REACTIONS (2)
  - DEEP VEIN THROMBOSIS [None]
  - PULMONARY EMBOLISM [None]
